FAERS Safety Report 25888954 (Version 7)
Quarter: 2025Q4

REPORT INFORMATION
  Report Type: Report from Study
  Country: KR (occurrence: KR)
  Receive Date: 20251007
  Receipt Date: 20251228
  Transmission Date: 20260118
  Serious: Yes (Hospitalization)
  Sender: ABBVIE
  Company Number: KR-ABBVIE-6487076

PATIENT
  Age: 43 Year
  Sex: Female
  Weight: 48 kg

DRUGS (16)
  1. RINVOQ [Suspect]
     Active Substance: UPADACITINIB
     Indication: Crohn^s disease
     Dosage: MODIFIED-RELEASE FILM-COATED TABLET
     Route: 048
     Dates: start: 20250717, end: 20251029
  2. RINVOQ [Suspect]
     Active Substance: UPADACITINIB
     Indication: Crohn^s disease
     Dosage: MODIFIED-RELEASE FILM-COATED TABLET
     Route: 048
     Dates: start: 20251108, end: 20251118
  3. SYNTHROID [Concomitant]
     Active Substance: LEVOTHYROXINE SODIUM
     Indication: Hypothyroidism
     Route: 048
     Dates: start: 2018
  4. Venoferrum [Concomitant]
     Indication: Iron deficiency anaemia
     Route: 042
     Dates: start: 20250812, end: 20250812
  5. TEGOPRAZAN [Concomitant]
     Active Substance: TEGOPRAZAN
     Indication: Haematochezia
     Route: 048
     Dates: start: 20250812, end: 20250828
  6. GC SELENIUM [Concomitant]
     Indication: Nutritional supplementation
     Dosage: UNIT DOSE: 2VIAL
     Route: 042
     Dates: start: 20250918, end: 20250918
  7. RAMNOS [Concomitant]
     Indication: Crohn^s disease
     Dosage: TIME INTERVAL: 0.33333333 DAYS
     Route: 048
     Dates: start: 20250930
  8. POLYBUTINE [Concomitant]
     Indication: Crohn^s disease
     Route: 048
     Dates: start: 20250930
  9. ENCOVER [Concomitant]
     Indication: Nutritional supplementation
     Dosage: UNIT DOSE: 1BAG
     Route: 048
     Dates: start: 20250910, end: 20250913
  10. SOLONDO [Concomitant]
     Indication: Haematochezia
     Route: 048
     Dates: start: 20250926, end: 20251004
  11. SOLONDO [Concomitant]
     Indication: Haematochezia
     Route: 048
     Dates: start: 20250910, end: 20250917
  12. SOLONDO [Concomitant]
     Indication: Haematochezia
     Route: 048
     Dates: start: 20250813, end: 20250828
  13. SOLONDO [Concomitant]
     Indication: Haematochezia
     Route: 048
     Dates: start: 20250923, end: 20250926
  14. SOLONDO [Concomitant]
     Indication: Haematochezia
     Route: 048
     Dates: start: 20250828, end: 20250910
  15. PENTASA [Concomitant]
     Active Substance: MESALAMINE
     Indication: Crohn^s disease
     Dosage: UNIT DOSE:2 PACK
     Route: 048
     Dates: start: 20240612, end: 20251021
  16. Kynex 3 [Concomitant]
     Indication: Dry eye
     Dosage: UNIT DOSE: 1EA?EYE DROP 0.5ML
     Dates: start: 20250923

REACTIONS (9)
  - Melaena [Recovered/Resolved]
  - Haematochezia [Recovered/Resolved]
  - Raynaud^s phenomenon [Recovering/Resolving]
  - Dry eye [Recovering/Resolving]
  - Polyneuropathy [Recovering/Resolving]
  - Endocrine disorder [Recovering/Resolving]
  - Herpes zoster [Recovering/Resolving]
  - Metabolic disorder [Recovering/Resolving]
  - Pyrexia [Recovered/Resolved]

NARRATIVE: CASE EVENT DATE: 20250810
